FAERS Safety Report 17975328 (Version 3)
Quarter: 2020Q3

REPORT INFORMATION
  Report Type: Spontaneous
  Country: CH (occurrence: CH)
  Receive Date: 20200702
  Receipt Date: 20200826
  Transmission Date: 20201103
  Serious: Yes (Hospitalization)
  Sender: FDA-Public Use
  Company Number: CH-NOVOPROD-728232

PATIENT
  Age: 63 Year
  Sex: Female
  Weight: 112 kg

DRUGS (17)
  1. OZEMPIC [Suspect]
     Active Substance: SEMAGLUTIDE
     Dosage: 1 MG
     Route: 065
     Dates: start: 20200510
  2. TRESIBA [Suspect]
     Active Substance: INSULIN DEGLUDEC
     Indication: TYPE 2 DIABETES MELLITUS
     Dosage: 24 IU, QD
     Route: 058
     Dates: end: 20200530
  3. COVERSUM [Concomitant]
     Active Substance: PERINDOPRIL
     Dosage: UNK (1 TABL. IN THE MORNING)
     Route: 065
  4. PANTOPRAZOL [PANTOPRAZOLE] [Concomitant]
     Active Substance: PANTOPRAZOLE
     Dosage: 40 MG, QD (IN RESERVE, IF NEEDED. MORNINGS.)
     Route: 065
  5. VI?DE 3 [Concomitant]
     Active Substance: CHOLECALCIFEROL
     Dosage: 2.50 ML, QW ( SUNDAYS)
     Route: 065
  6. ELTROXIN [Concomitant]
     Active Substance: LEVOTHYROXINE
     Dosage: 0.10 UNK, QD
     Route: 065
  7. ECOFENAC [Concomitant]
     Active Substance: DICLOFENAC SODIUM
     Dosage: 750 MG, QD ( IF NEEDED. MORNINGS AFTER MEALTIME)
     Route: 065
  8. HALDOL [Suspect]
     Active Substance: HALOPERIDOL
     Indication: PRODUCT USED FOR UNKNOWN INDICATION
     Dosage: UNK
     Route: 065
  9. NOVORAPID [Concomitant]
     Active Substance: INSULIN ASPART
     Dosage: UNK
     Route: 065
     Dates: start: 20200609
  10. ZANIDIP [Concomitant]
     Active Substance: LERCANIDIPINE HYDROCHLORIDE
     Dosage: 10 MG, QD (MORNING)
     Route: 065
  11. KCL?RETARD [Concomitant]
     Active Substance: POTASSIUM CHLORIDE
     Dosage: 10 MMOL, QOD ( MONDAY, WEDNESDAY, FRIDAY)
     Route: 065
  12. NEBILET [Concomitant]
     Active Substance: NEBIVOLOL
     Dosage: 2.50 MG, QD
     Route: 065
  13. ABILIFY [Concomitant]
     Active Substance: ARIPIPRAZOLE
     Dosage: 20 MG, QD
     Route: 065
  14. OZEMPIC [Suspect]
     Active Substance: SEMAGLUTIDE
     Indication: TYPE 2 DIABETES MELLITUS
     Dosage: UNK
     Route: 065
     Dates: end: 20200406
  15. TRESIBA [Suspect]
     Active Substance: INSULIN DEGLUDEC
     Dosage: 36 IU, QD
     Route: 058
     Dates: start: 20200530
  16. METFIN [Concomitant]
     Active Substance: METFORMIN HYDROCHLORIDE
     Indication: PRODUCT USED FOR UNKNOWN INDICATION
     Dosage: 500 MG, BID
     Route: 065
  17. VALIUM [Suspect]
     Active Substance: DIAZEPAM
     Indication: PRODUCT USED FOR UNKNOWN INDICATION
     Dosage: UNK
     Route: 065

REACTIONS (18)
  - Chills [Recovered/Resolved]
  - Hyperhidrosis [Recovered/Resolved]
  - Pain in extremity [Recovered/Resolved]
  - Increased appetite [Recovered/Resolved]
  - Gait disturbance [Recovered/Resolved]
  - Flushing [Recovered/Resolved]
  - Oedema peripheral [Recovered/Resolved]
  - Eyelid oedema [Recovered/Resolved]
  - Dry mouth [Recovered/Resolved]
  - Headache [Recovered/Resolved]
  - Drug interaction [Recovered/Resolved]
  - Arthralgia [Recovered/Resolved]
  - Muscular weakness [Recovered/Resolved]
  - Balance disorder [Recovered/Resolved]
  - Hyperglycaemia [Recovered/Resolved]
  - Swelling face [Recovered/Resolved]
  - Visual impairment [Recovered/Resolved]
  - Weight increased [Recovered/Resolved]

NARRATIVE: CASE EVENT DATE: 20200109
